FAERS Safety Report 7050335-1 (Version None)
Quarter: 2010Q4

REPORT INFORMATION
  Report Type: 
  Country: None (occurrence: None)
  Receive Date: 20101018
  Receipt Date: 20101011
  Transmission Date: 20110411
  Serious: Yes (Other)
  Sender: FDA-Public Use
  Company Number: MX-BAYER-201042037GPV

PATIENT
  Age: 55 Year
  Sex: Male

DRUGS (3)
  1. PRAZIQUANTEL [Suspect]
     Indication: NEUROCYSTICERCOSIS
  2. PRAZIQUANTEL [Suspect]
  3. STEROIDS [Concomitant]

REACTIONS (10)
  - AMYOTROPHIC LATERAL SCLEROSIS [None]
  - DYSKINESIA [None]
  - HYPERREFLEXIA [None]
  - MUSCLE ATROPHY [None]
  - MUSCLE CONTRACTIONS INVOLUNTARY [None]
  - MUSCULAR WEAKNESS [None]
  - NOCTURNAL DYSPNOEA [None]
  - SALIVARY HYPERSECRETION [None]
  - SPEECH DISORDER [None]
  - TONGUE ATROPHY [None]
